FAERS Safety Report 21816087 (Version 1)
Quarter: 2023Q1

REPORT INFORMATION
  Report Type: Spontaneous
  Country: BR (occurrence: BR)
  Receive Date: 20230104
  Receipt Date: 20230104
  Transmission Date: 20230417
  Serious: Yes (Other)
  Sender: FDA-Public Use
  Company Number: BR-002147023-NVSC2022BR301969

PATIENT
  Age: 52 Year
  Sex: Male

DRUGS (5)
  1. CYCLOSPORINE [Suspect]
     Active Substance: CYCLOSPORINE
     Indication: Aplasia pure red cell
     Dosage: UNK
     Route: 065
  2. CYCLOSPORINE [Suspect]
     Active Substance: CYCLOSPORINE
     Indication: Immunosuppression
  3. PREDNISONE [Suspect]
     Active Substance: PREDNISONE
     Indication: Aplasia pure red cell
     Dosage: UNK
     Route: 065
  4. SOFOSBUVIR [Concomitant]
     Active Substance: SOFOSBUVIR
     Indication: Aplasia pure red cell
     Dosage: UNK
     Route: 065
  5. SIMEPREVIR [Concomitant]
     Active Substance: SIMEPREVIR
     Indication: Aplasia pure red cell
     Dosage: UNK
     Route: 065

REACTIONS (2)
  - Thrombocytopenia [Unknown]
  - Drug ineffective for unapproved indication [Unknown]
